FAERS Safety Report 7746962-6 (Version None)
Quarter: 2011Q3

REPORT INFORMATION
  Report Type: 
  Country: None (occurrence: None)
  Receive Date: 20110913
  Receipt Date: 20110902
  Transmission Date: 20111222
  Serious: Yes (Other)
  Sender: FDA-Public Use
  Company Number: PHHY2011PL80385

PATIENT
  Sex: Male

DRUGS (1)
  1. GILENYA [Suspect]
     Dosage: UNK UKN, UNK

REACTIONS (4)
  - HERPES VIRUS INFECTION [None]
  - IMPAIRED HEALING [None]
  - PYELONEPHRITIS [None]
  - IMPETIGO [None]
